FAERS Safety Report 8435754-0 (Version None)
Quarter: 2012Q2

REPORT INFORMATION
  Report Type: 
  Country: None (occurrence: None)
  Receive Date: 20120614
  Receipt Date: 20120606
  Transmission Date: 20120825
  Serious: Yes (Other)
  Sender: FDA-Public Use
  Company Number: GB-ALLERGAN-1207962US

PATIENT
  Age: 66 Year
  Sex: Male

DRUGS (1)
  1. DAPSONE [Suspect]
     Indication: SUBCORNEAL PUSTULAR DERMATOSIS

REACTIONS (1)
  - HAEMOLYTIC ANAEMIA [None]
